FAERS Safety Report 11925486 (Version 1)
Quarter: 2016Q1

REPORT INFORMATION
  Report Type: Spontaneous
  Country: US (occurrence: US)
  Receive Date: 20160118
  Receipt Date: 20160118
  Transmission Date: 20160526
  Serious: Yes (Other)
  Sender: FDA-Public Use
  Company Number: US-BAYER-2016-006349

PATIENT
  Age: 80 Year
  Sex: Male
  Weight: 72.56 kg

DRUGS (1)
  1. ALKA-SELTZER PLUS NIGHT COLD MEDICINE [Suspect]
     Active Substance: ASPIRIN\DEXTROMETHORPHAN HYDROBROMIDE\DOXYLAMINE SUCCINATE\PHENYLEPHRINE BITARTRATE
     Indication: NASOPHARYNGITIS
     Dosage: 2 DF, PRN
     Route: 048
     Dates: start: 20160109

REACTIONS (3)
  - Expired product administered [None]
  - Product use issue [None]
  - Aphonia [Not Recovered/Not Resolved]

NARRATIVE: CASE EVENT DATE: 20160109
